FAERS Safety Report 10003398 (Version 1)
Quarter: 2014Q1

REPORT INFORMATION
  Report Type: Spontaneous
  Country: GB (occurrence: GB)
  Receive Date: 20140312
  Receipt Date: 20140312
  Transmission Date: 20141002
  Serious: Yes (Life-Threatening, Disabling)
  Sender: FDA-Public Use
  Company Number: GB-ACTAVIS-2014-04174

PATIENT
  Age: 77 Year
  Sex: Male

DRUGS (3)
  1. DONEPEZIL [Suspect]
     Indication: DEMENTIA
     Dosage: 5 MG, DAILY; 5MG ONCE A DAY INCREASED TO 10MG AT NIGHT AFTER 2 WEEKS
     Route: 048
     Dates: start: 20140127
  2. DONEPEZIL (UNKNOWN) [Suspect]
     Dosage: 10 MG, DAILY; 5MG ONCE A DAY INCREASED TO 10MG AT NIGHT AFTER 2 WEEKS
     Route: 048
     Dates: end: 20140217
  3. TRAMADOL [Concomitant]
     Indication: PRODUCT USED FOR UNKNOWN INDICATION
     Dosage: UNK
     Route: 065

REACTIONS (5)
  - Hallucination, visual [Unknown]
  - Headache [Unknown]
  - Insomnia [Unknown]
  - Somnolence [Unknown]
  - Confusional state [Unknown]
